FAERS Safety Report 9782695 (Version 1)
Quarter: 2013Q4

REPORT INFORMATION
  Report Type: Report from Study
  Country: NL (occurrence: NL)
  Receive Date: 20131226
  Receipt Date: 20131226
  Transmission Date: 20140711
  Serious: Yes (Death)
  Sender: FDA-Public Use
  Company Number: PHHY2013NL151787

PATIENT
  Age: 49 Year
  Sex: Male

DRUGS (2)
  1. ACLASTA [Suspect]
     Indication: OSTEOPOROSIS
     Dosage: 5 MG, ONE PER 52 WEEKS
     Route: 042
     Dates: start: 20120130
  2. ACLASTA [Suspect]
     Dosage: 5 MG, ONE PER 52 WEEKS
     Route: 042
     Dates: start: 20130205

REACTIONS (1)
  - Death [Fatal]
